FAERS Safety Report 6816712-6 (Version None)
Quarter: 2010Q3

REPORT INFORMATION
  Report Type: 
  Country: None (occurrence: None)
  Receive Date: 20100706
  Receipt Date: 20100628
  Transmission Date: 20110219
  Serious: Yes (Hospitalization)
  Sender: FDA-Public Use
  Company Number: US-JNJFOC-20100700205

PATIENT
  Sex: Male
  Weight: 147.42 kg

DRUGS (6)
  1. DURAGESIC-100 [Suspect]
     Indication: PROCEDURAL PAIN
     Route: 062
  2. DURAGESIC-100 [Suspect]
     Route: 062
  3. DURAGESIC-100 [Suspect]
     Route: 062
  4. NAPROXEN [Concomitant]
     Indication: BACK PAIN
     Route: 048
  5. ATIVAN [Concomitant]
     Indication: ANXIETY
     Route: 048
  6. PANTOPRAZOLE [Concomitant]
     Indication: GASTROOESOPHAGEAL REFLUX DISEASE
     Route: 048

REACTIONS (3)
  - ABDOMINAL ABSCESS [None]
  - OFF LABEL USE [None]
  - PROSTATOMEGALY [None]
